FAERS Safety Report 23146767 (Version 2)
Quarter: 2023Q4

REPORT INFORMATION
  Report Type: Report from Study
  Country: CA (occurrence: CA)
  Receive Date: 20231105
  Receipt Date: 20231128
  Transmission Date: 20240110
  Serious: Yes (Other)
  Sender: FDA-Public Use
  Company Number: CA-JNJFOC-20231103957

PATIENT
  Age: 33 Year
  Sex: Female

DRUGS (2)
  1. TREMFYA [Suspect]
     Active Substance: GUSELKUMAB
     Indication: Psoriasis
     Route: 058
     Dates: start: 20231019
  2. TREMFYA [Suspect]
     Active Substance: GUSELKUMAB
     Route: 065

REACTIONS (2)
  - Facial spasm [Unknown]
  - Psoriasis [Unknown]

NARRATIVE: CASE EVENT DATE: 20231001
